APPROVED DRUG PRODUCT: PROCHLORPERAZINE MALEATE
Active Ingredient: PROCHLORPERAZINE MALEATE
Strength: EQ 5MG BASE
Dosage Form/Route: TABLET;ORAL
Application: A217847 | Product #001 | TE Code: AB
Applicant: DR REDDYS LABORATORIES SA
Approved: May 19, 2025 | RLD: No | RS: No | Type: RX